FAERS Safety Report 21439077 (Version 1)
Quarter: 2022Q4

REPORT INFORMATION
  Report Type: Spontaneous
  Country: IT (occurrence: IT)
  Receive Date: 20221011
  Receipt Date: 20221011
  Transmission Date: 20230112
  Serious: Yes (Hospitalization)
  Sender: FDA-Public Use
  Company Number: None

PATIENT
  Age: 51 Year
  Sex: Female
  Weight: 94 kg

DRUGS (2)
  1. CAPECITABINE [Interacting]
     Active Substance: CAPECITABINE
     Indication: Colon cancer
     Dates: start: 20220423, end: 20220504
  2. OXALIPLATIN [Interacting]
     Active Substance: OXALIPLATIN
     Indication: Colon cancer
     Dates: start: 20220331, end: 20220422

REACTIONS (6)
  - Thrombocytopenia [Recovered/Resolved]
  - Mucosal inflammation [Recovered/Resolved]
  - Diarrhoea [Recovered/Resolved]
  - Anaemia [Recovered/Resolved]
  - Mucosal necrosis [Recovered/Resolved]
  - Drug interaction [Unknown]

NARRATIVE: CASE EVENT DATE: 20220502
